FAERS Safety Report 13862010 (Version 2)
Quarter: 2017Q3

REPORT INFORMATION
  Report Type: Report from Study
  Country: US (occurrence: US)
  Receive Date: 20170812
  Receipt Date: 20170822
  Transmission Date: 20171127
  Serious: Yes (Other)
  Sender: FDA-Public Use
  Company Number: US-ROCHE-1975541

PATIENT

DRUGS (1)
  1. BEVACIZUMAB. [Suspect]
     Active Substance: BEVACIZUMAB
     Indication: NEOPLASM MALIGNANT
     Route: 065

REACTIONS (6)
  - Cerebral haemorrhage [Unknown]
  - Haematemesis [Unknown]
  - Haematuria [Unknown]
  - Mucocutaneous haemorrhage [Unknown]
  - Epistaxis [Unknown]
  - Haematochezia [Unknown]
